FAERS Safety Report 15166067 (Version 5)
Quarter: 2020Q2

REPORT INFORMATION
  Report Type: Report from Study
  Country: DE (occurrence: DE)
  Receive Date: 20180719
  Receipt Date: 20200629
  Transmission Date: 20200713
  Serious: Yes (Hospitalization)
  Sender: FDA-Public Use
  Company Number: DE-JNJFOC-20180637009

PATIENT
  Age: 69 Year
  Sex: Female
  Weight: 68 kg

DRUGS (12)
  1. MONO-EMBOLEX [Concomitant]
     Active Substance: CERTOPARIN SODIUM
     Indication: THROMBOSIS PROPHYLAXIS
     Dosage: 300 IE
     Dates: start: 20180618
  2. METOPROLOL SUCCINATE. [Concomitant]
     Active Substance: METOPROLOL SUCCINATE
     Indication: CORONARY ARTERY DISEASE
     Dates: start: 2012
  3. ACICLOVIR [Concomitant]
     Active Substance: ACYCLOVIR
     Indication: HERPES ZOSTER
     Dates: start: 20180618, end: 20180703
  4. BELOC ZOK MITE [Concomitant]
     Active Substance: METOPROLOL SUCCINATE
     Indication: CORONARY ARTERY DISEASE
     Dates: start: 2012
  5. METAZOL                            /00012501/ [Concomitant]
     Indication: HEADACHE
     Dates: start: 20180618
  6. ASPIRIN. [Concomitant]
     Active Substance: ASPIRIN
     Indication: AORTIC VALVE REPLACEMENT
     Dates: start: 2012
  7. PANTOPRAZOLE SODIUM. [Concomitant]
     Active Substance: PANTOPRAZOLE SODIUM
     Indication: GASTROINTESTINAL DISORDER THERAPY
     Dates: start: 2012
  8. CANDESARTAN. [Concomitant]
     Active Substance: CANDESARTAN
     Indication: CORONARY ARTERY DISEASE
     Dosage: 8 MG/12.5 MG
     Dates: start: 2012
  9. STELARA [Suspect]
     Active Substance: USTEKINUMAB
     Indication: PSORIASIS
     Route: 058
     Dates: start: 20171017, end: 20191021
  10. OXYCODONE [Concomitant]
     Active Substance: OXYCODONE
     Indication: HEADACHE
     Dates: start: 20180705
  11. ZOVIRAX [Concomitant]
     Active Substance: ACYCLOVIR
     Indication: HERPES ZOSTER
     Dates: start: 20180618, end: 201806
  12. SIMVASTATIN. [Concomitant]
     Active Substance: SIMVASTATIN
     Indication: HYPERCHOLESTEROLAEMIA

REACTIONS (6)
  - Femur fracture [Unknown]
  - Fall [Unknown]
  - Herpes zoster [Recovered/Resolved]
  - Acute kidney injury [Unknown]
  - Headache [Recovered/Resolved]
  - Circulatory collapse [Recovered/Resolved]

NARRATIVE: CASE EVENT DATE: 20180618
